FAERS Safety Report 9773163 (Version 2)
Quarter: 2014Q1

REPORT INFORMATION
  Report Type: Spontaneous
  Country: AU (occurrence: AU)
  Receive Date: 20131219
  Receipt Date: 20140210
  Transmission Date: 20141002
  Serious: Yes (Other)
  Sender: FDA-Public Use
  Company Number: AU-PFIZER INC-2013359938

PATIENT
  Age: 50 Year
  Sex: Female
  Weight: 70 kg

DRUGS (7)
  1. CYCLOPHOSPHAMIDE [Suspect]
     Indication: SCLERODERMA
     Dosage: UNK
     Route: 042
     Dates: start: 20130814, end: 20131023
  2. CYCLOPHOSPHAMIDE [Suspect]
     Indication: INTERSTITIAL LUNG DISEASE
  3. METHYLPREDNISOLONE [Concomitant]
     Dosage: 1000 MG, MONTHLY
     Route: 042
  4. IRBESARTAN [Concomitant]
     Dosage: 150 MG, 2X/DAY
  5. IMMUNOGLOBULIN G HUMAN [Concomitant]
     Indication: PROPHYLAXIS
     Route: 042
  6. PROSTACYCLIN [Concomitant]
     Route: 042
  7. NIFEDIPINE - SLOW RELEASE [Concomitant]
     Dosage: 20 MG, 1X/DAY (IN THE MORNING)

REACTIONS (6)
  - Pulmonary embolism [Unknown]
  - Deep vein thrombosis [Unknown]
  - Infection [Unknown]
  - Haemoptysis [Recovered/Resolved]
  - Haemoptysis [Recovered/Resolved]
  - Dyspnoea [Unknown]
